FAERS Safety Report 5352210-7 (Version None)
Quarter: 2007Q2

REPORT INFORMATION
  Report Type: 
  Country: None (occurrence: None)
  Receive Date: 20070606
  Receipt Date: 20070522
  Transmission Date: 20071010
  Serious: Yes (Death)
  Sender: FDA-Public Use
  Company Number: 2007S1000236

PATIENT
  Age: 70 Year
  Sex: Male

DRUGS (2)
  1. CUBICIN [Suspect]
     Indication: SOFT TISSUE INFECTION
     Dosage: 4 MG/KG;Q24H;IV
     Route: 042
  2. ARICEPT [Concomitant]

REACTIONS (1)
  - DISEASE PROGRESSION [None]
